FAERS Safety Report 5049150-X (Version None)
Quarter: 2006Q3

REPORT INFORMATION
  Report Type: 
  Country: None (occurrence: None)
  Receive Date: 20060712
  Receipt Date: 20060329
  Transmission Date: 20061208
  Serious: Yes (Other)
  Sender: FDA-Public Use
  Company Number: US-GLAXOSMITHKLINE-A0599921A

PATIENT
  Sex: Male

DRUGS (1)
  1. IMITREX [Suspect]
     Route: 048

REACTIONS (1)
  - PANCREATITIS [None]
